FAERS Safety Report 21212036 (Version 1)
Quarter: 2022Q3

REPORT INFORMATION
  Report Type: Spontaneous
  Country: CA (occurrence: CA)
  Receive Date: 20220815
  Receipt Date: 20220815
  Transmission Date: 20221027
  Serious: Yes (Hospitalization)
  Sender: FDA-Public Use
  Company Number: CA-PFIZER INC-202201056566

PATIENT
  Age: 34 Year
  Sex: Female

DRUGS (16)
  1. CELEBREX [Suspect]
     Active Substance: CELECOXIB
     Dosage: 200 MG, AS NEEDED
     Route: 048
  2. CELEBREX [Suspect]
     Active Substance: CELECOXIB
     Dosage: 200 MG, 1 EVERY 24 HOURS
     Route: 048
  3. ADVIL [Suspect]
     Active Substance: IBUPROFEN
     Dosage: UNK, AS NEEDED
     Route: 048
  4. NAPROSYN [Suspect]
     Active Substance: NAPROXEN
     Dosage: UNK, AS NEEDED
     Route: 048
  5. ACETAMINOPHEN [Concomitant]
     Active Substance: ACETAMINOPHEN
  6. BUDESONIDE [Concomitant]
     Active Substance: BUDESONIDE
  7. CETIRIZINE [Concomitant]
     Active Substance: CETIRIZINE HYDROCHLORIDE
  8. DIPHENHYDRAMINE [Concomitant]
     Active Substance: DIPHENHYDRAMINE
  9. NORETHINDRONE ACETATE AND ETHINYL ESTRADIOL [Concomitant]
     Active Substance: ETHINYL ESTRADIOL\NORETHINDRONE ACETATE
     Dosage: UNK
  10. FERROUS SULFATE ANHYDROUS [Concomitant]
     Active Substance: FERROUS SULFATE ANHYDROUS
  11. LORAZEPAM [Concomitant]
     Active Substance: LORAZEPAM
     Dosage: UNK
     Route: 065
  12. MONTELUKAST [Concomitant]
     Active Substance: MONTELUKAST SODIUM
  13. MORPHINE [Concomitant]
     Active Substance: MORPHINE
  14. PANTOPRAZOLE [Concomitant]
     Active Substance: PANTOPRAZOLE
  15. POLYETHYLENE GLYCOLS [Concomitant]
     Active Substance: POLYETHYLENE GLYCOLS
  16. ZENHALE [Concomitant]
     Active Substance: FORMOTEROL FUMARATE\MOMETASONE FUROATE

REACTIONS (1)
  - Gastrointestinal anastomotic haemorrhage [Recovered/Resolved]
